FAERS Safety Report 7769343-8 (Version None)
Quarter: 2011Q3

REPORT INFORMATION
  Report Type: 
  Country: None (occurrence: None)
  Receive Date: 20110922
  Receipt Date: 20110919
  Transmission Date: 20111222
  Serious: Yes (Hospitalization)
  Sender: FDA-Public Use
  Company Number: DK-PFIZER INC-2011222307

PATIENT
  Sex: Female
  Weight: 71 kg

DRUGS (11)
  1. FELODIPINE [Concomitant]
     Indication: HYPERTENSION
  2. BISOPROLOL FUMARATE [Concomitant]
     Indication: ATRIAL FIBRILLATION
  3. ESTRING [Suspect]
     Indication: ATROPHIC VULVOVAGINITIS
     Dosage: 7.5 UG, 24 HOURS
     Route: 067
     Dates: start: 20110607, end: 20110913
  4. LYRICA [Concomitant]
     Indication: PAIN
  5. FUROSEMIDE [Concomitant]
     Indication: HYPERTENSION
  6. SEROQUEL [Concomitant]
     Indication: ANXIETY
  7. MAREVAN ^NYCOMED^ [Concomitant]
     Indication: ATRIAL FIBRILLATION
  8. SIMVASTATIN [Concomitant]
     Indication: HYPERCHOLESTEROLAEMIA
  9. AMLODIPINE [Concomitant]
     Indication: HYPERTENSION
  10. CARDICOR [Concomitant]
  11. LANSOPRAZOLE [Concomitant]
     Indication: GASTRIC PH DECREASED

REACTIONS (2)
  - ATRIAL FIBRILLATION [None]
  - CONDITION AGGRAVATED [None]
